FAERS Safety Report 17575659 (Version 3)
Quarter: 2020Q2

REPORT INFORMATION
  Report Type: Report from Study
  Country: None (occurrence: US)
  Receive Date: 20200324
  Receipt Date: 20200521
  Transmission Date: 20200713
  Serious: Yes (Hospitalization)
  Sender: FDA-Public Use
  Company Number: US-ABBVIE-20P-163-3221647-00

PATIENT
  Sex: Female

DRUGS (2)
  1. IMBRUVICA [Suspect]
     Active Substance: IBRUTINIB
     Indication: B-CELL LYMPHOMA
     Route: 048
     Dates: start: 20190817
  2. IMBRUVICA [Suspect]
     Active Substance: IBRUTINIB
     Route: 048
     Dates: start: 20190812, end: 2020

REACTIONS (8)
  - Abdominal distension [Unknown]
  - Fatigue [Unknown]
  - Increased tendency to bruise [Unknown]
  - Pleural effusion [Unknown]
  - Asthenia [Unknown]
  - Chest pain [Unknown]
  - Pain [Unknown]
  - Dyspnoea [Recovering/Resolving]
